FAERS Safety Report 9011611 (Version 1)
Quarter: 2013Q1

REPORT INFORMATION
  Report Type: Spontaneous
  Country: US (occurrence: US)
  Receive Date: 20130108
  Receipt Date: 20130108
  Transmission Date: 20140127
  Serious: Yes (Hospitalization)
  Sender: FDA-Public Use
  Company Number: US-009507513-1301USA002561

PATIENT
  Age: 67 Year
  Sex: Female

DRUGS (5)
  1. SINGULAIR [Suspect]
     Indication: PRODUCT USED FOR UNKNOWN INDICATION
     Dosage: 15 MG, WEEKLY
  2. SINGULAIR [Suspect]
     Indication: PSORIASIS
  3. AMARYL [Suspect]
     Dosage: 2 MG, BID
  4. AMEVIVE [Suspect]
     Route: 030
  5. THEOPHYLLINE [Concomitant]

REACTIONS (4)
  - Hypoglycaemia [Unknown]
  - Hepatitis cholestatic [Unknown]
  - Cholelithiasis [Unknown]
  - CD4 lymphocytes decreased [Unknown]
